FAERS Safety Report 5943245-1 (Version None)
Quarter: 2008Q4

REPORT INFORMATION
  Report Type: 
  Country: None (occurrence: None)
  Receive Date: 20081106
  Receipt Date: 20081104
  Transmission Date: 20090506
  Serious: Yes (Death, Other)
  Sender: FDA-Public Use
  Company Number: JP-BRISTOL-MYERS SQUIBB COMPANY-14395446

PATIENT
  Age: 73 Year
  Sex: Male

DRUGS (4)
  1. TAXOL [Suspect]
     Indication: GASTRIC CANCER RECURRENT
     Route: 041
     Dates: start: 20081014, end: 20081014
  2. FAMOTIDINE [Concomitant]
     Route: 041
     Dates: start: 20081014, end: 20081014
  3. DECADRON [Concomitant]
     Route: 041
     Dates: start: 20081014, end: 20081014
  4. CHLOR-TRIMETON [Concomitant]
     Route: 041
     Dates: start: 20081014, end: 20081014

REACTIONS (5)
  - ALANINE AMINOTRANSFERASE INCREASED [None]
  - ASPARTATE AMINOTRANSFERASE INCREASED [None]
  - BONE MARROW FAILURE [None]
  - HEPATIC FUNCTION ABNORMAL [None]
  - MUSCULAR WEAKNESS [None]
